FAERS Safety Report 18944760 (Version 1)
Quarter: 2021Q1

REPORT INFORMATION
  Report Type: Report from Study
  Country: CA (occurrence: CA)
  Receive Date: 20210226
  Receipt Date: 20210226
  Transmission Date: 20210420
  Serious: Yes (Life-Threatening, Hospitalization, Other)
  Sender: FDA-Public Use
  Company Number: CA-ACCORD-218246

PATIENT

DRUGS (3)
  1. FOLINIC ACID [Concomitant]
     Active Substance: LEUCOVORIN
  2. FILGRASTIM [Concomitant]
     Active Substance: FILGRASTIM
     Dosage: (5 MCG/KG S/C DIE)
  3. METHOTREXATE. [Suspect]
     Active Substance: METHOTREXATE
     Indication: CENTRAL NERVOUS SYSTEM LYMPHOMA
     Dosage: HIGH?DOSE
     Route: 013

REACTIONS (2)
  - Off label use [Unknown]
  - Status epilepticus [Unknown]
